FAERS Safety Report 17002959 (Version 1)
Quarter: 2019Q4

REPORT INFORMATION
  Report Type: Spontaneous
  Country: FR (occurrence: FR)
  Receive Date: 20191107
  Receipt Date: 20191107
  Transmission Date: 20200122
  Serious: Yes (Hospitalization)
  Sender: FDA-Public Use
  Company Number: FR-TEVA-2019-FR-1131775

PATIENT
  Age: 36 Year
  Sex: Female
  Weight: 81 kg

DRUGS (2)
  1. QUETIAPINE. [Suspect]
     Active Substance: QUETIAPINE
     Indication: AGGRESSION
     Dosage: 400 MILLIGRAM PER DAY
     Route: 048
     Dates: start: 20190925, end: 20190925
  2. LOXAPAC 100 MG, COMPRIME PELLICULE [Suspect]
     Active Substance: LOXAPINE
     Indication: AGGRESSION
     Dosage: 200 MILLIGRAM PER DAY
     Route: 030
     Dates: start: 20190924, end: 20190926

REACTIONS (2)
  - Hyperthermia [Recovered/Resolved]
  - Rhabdomyolysis [Recovered/Resolved]

NARRATIVE: CASE EVENT DATE: 20190926
